FAERS Safety Report 5728093-X (Version None)
Quarter: 2008Q2

REPORT INFORMATION
  Report Type: 
  Country: None (occurrence: None)
  Receive Date: 20080505
  Receipt Date: 20080423
  Transmission Date: 20081010
  Serious: Yes (Hospitalization, Other)
  Sender: FDA-Public Use
  Company Number: GB-PFIZER INC-2008028563

PATIENT
  Age: 50 Year
  Sex: Male

DRUGS (7)
  1. PHENYTOIN [Interacting]
     Indication: EPILEPSY
  2. OMEPRAZOLE [Interacting]
  3. ALCOHOL [Suspect]
  4. INSULIN [Concomitant]
  5. VITAMIN B COMPLEX CAP [Concomitant]
  6. ATORVASTATIN [Concomitant]
  7. SPIRONOLACTONE [Concomitant]

REACTIONS (14)
  - ANAEMIA MACROCYTIC [None]
  - BLOOD ALBUMIN DECREASED [None]
  - BLOOD BILIRUBIN INCREASED [None]
  - CEREBELLAR SYNDROME [None]
  - CONVULSION [None]
  - DRUG INTERACTION [None]
  - DRUG TOXICITY [None]
  - DYSARTHRIA [None]
  - GAMMA-GLUTAMYLTRANSFERASE INCREASED [None]
  - LIVER DISORDER [None]
  - NYSTAGMUS [None]
  - PROTHROMBIN TIME PROLONGED [None]
  - THROMBOCYTHAEMIA [None]
  - THROMBOCYTOPENIA [None]
